FAERS Safety Report 10436325 (Version 1)
Quarter: 2014Q3

REPORT INFORMATION
  Report Type: Spontaneous
  Country: US (occurrence: None)
  Receive Date: 20140904
  Receipt Date: 20140904
  Transmission Date: 20150326
  Serious: Yes (Hospitalization)
  Sender: FDA-Public Use
  Company Number: US-H14001-14-00472

PATIENT
  Age: 85 Year
  Sex: Female
  Weight: 79.1 kg

DRUGS (3)
  1. VELCADE [Suspect]
     Active Substance: BORTEZOMIB
     Indication: PLASMA CELL MYELOMA
     Dosage: 1.3 MG/M2 (1.3 MG/M2,WEEKLY IN 28 DAY CYCLE),SUBCUTANEOUS
     Route: 058
     Dates: start: 20130516
  2. DEXAMETHASONE SODIUM PHOSPHATE [Suspect]
     Active Substance: DEXAMETHASONE SODIUM PHOSPHATE
     Indication: PLASMA CELL MYELOMA
     Dosage: 40 MG (40 MG,WEEKLY IN 28 DAY CYCLE),INTRAVENOUS (NOT OTHERWISE SPECIFIED)
     Route: 042
     Dates: start: 20130517
  3. CYTOXAN [Suspect]
     Active Substance: CYCLOPHOSPHAMIDE
     Indication: PLASMA CELL MYELOMA
     Dosage: 300 MG/M2 (300 MG/M2,WEEKLY IN 28 DAY CYCLE),INTRAVENOUS (NOT OTHERWISE SPECIFIED)
     Route: 042
     Dates: start: 20130517

REACTIONS (5)
  - Blood creatinine increased [None]
  - Cellulitis [None]
  - Oedema peripheral [None]
  - Haemorrhoidal haemorrhage [None]
  - Anaemia [None]

NARRATIVE: CASE EVENT DATE: 20130719
